FAERS Safety Report 13513183 (Version 1)
Quarter: 2017Q2

REPORT INFORMATION
  Report Type: Spontaneous
  Country: US (occurrence: US)
  Receive Date: 20170504
  Receipt Date: 20170504
  Transmission Date: 20170830
  Serious: No
  Sender: FDA-Public Use
  Company Number: US-ABBVIE-17P-163-1865844-00

PATIENT
  Sex: Female

DRUGS (1)
  1. ANDROGEL [Suspect]
     Active Substance: TESTOSTERONE
     Indication: EXPOSURE VIA PARTNER
     Dosage: FOUR PUMPS
     Route: 061

REACTIONS (2)
  - Accidental exposure to product [Not Recovered/Not Resolved]
  - Nipple pain [Not Recovered/Not Resolved]
